FAERS Safety Report 16242330 (Version 4)
Quarter: 2020Q3

REPORT INFORMATION
  Report Type: Report from Study
  Country: FR (occurrence: FR)
  Receive Date: 20190426
  Receipt Date: 20200804
  Transmission Date: 20201102
  Serious: Yes (Life-Threatening, Hospitalization)
  Sender: FDA-Public Use
  Company Number: FR-ACTELION-A-CH2019-185948

PATIENT
  Age: 35 Year
  Sex: Female
  Weight: 106 kg

DRUGS (13)
  1. VELETRI [Suspect]
     Active Substance: EPOPROSTENOL
     Indication: PULMONARY ARTERIAL HYPERTENSION
     Dosage: UNK
     Route: 042
     Dates: start: 20170420
  2. OXYGEN. [Concomitant]
     Active Substance: OXYGEN
     Dosage: 4 L, PER MIN
     Route: 055
  3. LANZOPRAZOL [Concomitant]
     Active Substance: LANSOPRAZOLE
     Dosage: UNK
     Dates: start: 20180108
  4. TADALAFIL. [Concomitant]
     Active Substance: TADALAFIL
     Dosage: UNK
     Dates: start: 20160922
  5. DIFFU K [Concomitant]
     Active Substance: POTASSIUM CHLORIDE
     Dosage: UNK
     Dates: start: 201712
  6. LASILIX [Concomitant]
     Active Substance: FUROSEMIDE
     Dosage: UNK
     Dates: start: 201609
  7. OXYGEN. [Concomitant]
     Active Substance: OXYGEN
     Dosage: 50 L, PER MIN
     Route: 055
  8. MACITENTAN [Suspect]
     Active Substance: MACITENTAN
     Indication: PULMONARY ARTERIAL HYPERTENSION
     Dosage: 10 MG, QD
     Route: 048
     Dates: start: 20161021
  9. COUMADIN [Concomitant]
     Active Substance: WARFARIN SODIUM
     Dosage: UNK
     Dates: start: 20160923
  10. OXYGEN. [Concomitant]
     Active Substance: OXYGEN
     Dosage: 2 L, PER MIN
     Route: 055
  11. CONTRAMAL [Concomitant]
     Active Substance: TRAMADOL HYDROCHLORIDE
     Dosage: UNK
     Dates: start: 201702
  12. OXYGEN. [Concomitant]
     Active Substance: OXYGEN
     Dosage: 8 L, PER MIN
     Route: 055
  13. LYRICA [Concomitant]
     Active Substance: PREGABALIN
     Dosage: UNK
     Dates: start: 20171228

REACTIONS (37)
  - Crepitations [Recovered/Resolved with Sequelae]
  - Hypoxia [Recovered/Resolved with Sequelae]
  - Corynebacterium bacteraemia [Recovered/Resolved]
  - Pleural effusion [Not Recovered/Not Resolved]
  - Metabolic alkalosis [Unknown]
  - Tachypnoea [Recovered/Resolved with Sequelae]
  - Pain [Recovered/Resolved]
  - Microcytic anaemia [Unknown]
  - Catheter management [Unknown]
  - Cardiomegaly [Recovered/Resolved with Sequelae]
  - Pericardial effusion [Recovered/Resolved with Sequelae]
  - Intra-abdominal fluid collection [Recovered/Resolved with Sequelae]
  - Pneumonia bacterial [Recovered/Resolved with Sequelae]
  - Oxygen consumption increased [Recovered/Resolved with Sequelae]
  - Productive cough [Recovered/Resolved with Sequelae]
  - Haemoptysis [Recovered/Resolved with Sequelae]
  - Chest pain [Recovered/Resolved with Sequelae]
  - Pyrexia [Recovered/Resolved with Sequelae]
  - Rales [Recovered/Resolved with Sequelae]
  - Respiratory alkalosis [Recovered/Resolved with Sequelae]
  - Condition aggravated [Recovered/Resolved with Sequelae]
  - Inflammation [Recovered/Resolved with Sequelae]
  - Leukocytosis [Recovered/Resolved with Sequelae]
  - Device related infection [Recovered/Resolved]
  - Device issue [Unknown]
  - Tachycardia [Recovered/Resolved with Sequelae]
  - Catheter culture positive [Recovered/Resolved]
  - Blood culture positive [Recovered/Resolved]
  - Corynebacterium test positive [Recovered/Resolved]
  - Hyperleukocytosis [Recovered/Resolved with Sequelae]
  - Thrombocytopenia [Recovered/Resolved with Sequelae]
  - Corynebacterium infection [Recovered/Resolved with Sequelae]
  - Dyspnoea [Recovered/Resolved with Sequelae]
  - Hypoventilation [Recovered/Resolved with Sequelae]
  - Lung opacity [Unknown]
  - Bundle branch block right [Unknown]
  - QRS axis abnormal [Unknown]

NARRATIVE: CASE EVENT DATE: 20171228
